FAERS Safety Report 19037544 (Version 1)
Quarter: 2021Q1

REPORT INFORMATION
  Report Type: Spontaneous
  Country: IT (occurrence: IT)
  Receive Date: 20210322
  Receipt Date: 20210322
  Transmission Date: 20210420
  Serious: Yes (Hospitalization)
  Sender: FDA-Public Use
  Company Number: IT-LUPIN PHARMACEUTICALS INC.-2021-03397

PATIENT
  Age: 57 Year
  Sex: Female

DRUGS (4)
  1. LOPERAMIDE [Concomitant]
     Active Substance: LOPERAMIDE
     Indication: IMMUNE-MEDIATED ENTEROCOLITIS
     Dosage: UNK
     Route: 065
  2. ATEZOLIZUMAB. [Concomitant]
     Active Substance: ATEZOLIZUMAB
     Indication: LUNG ADENOCARCINOMA STAGE IV
     Dosage: UNK
     Route: 065
     Dates: start: 201812, end: 2019
  3. RIFAXIMIN. [Concomitant]
     Active Substance: RIFAXIMIN
     Indication: IMMUNE-MEDIATED ENTEROCOLITIS
     Dosage: UNK
     Route: 065
  4. NYSTATIN. [Suspect]
     Active Substance: NYSTATIN
     Indication: CANDIDA INFECTION
     Dosage: UNK
     Route: 048

REACTIONS (1)
  - Therapy non-responder [Unknown]
